FAERS Safety Report 25258443 (Version 1)
Quarter: 2025Q2

REPORT INFORMATION
  Report Type: Spontaneous
  Country: US (occurrence: US)
  Receive Date: 20250501
  Receipt Date: 20250501
  Transmission Date: 20250717
  Serious: No
  Sender: AMGEN
  Company Number: US-AMGEN-USASP2025082483

PATIENT
  Sex: Male

DRUGS (2)
  1. XGEVA [Suspect]
     Active Substance: DENOSUMAB
     Indication: Basal cell carcinoma metastatic
     Route: 065
  2. XGEVA [Suspect]
     Active Substance: DENOSUMAB
     Indication: Prostate cancer metastatic

REACTIONS (1)
  - Toothache [Unknown]
